FAERS Safety Report 10045610 (Version 1)
Quarter: 2014Q1

REPORT INFORMATION
  Report Type: Spontaneous
  Country: GB (occurrence: GB)
  Receive Date: 20140328
  Receipt Date: 20140328
  Transmission Date: 20141002
  Serious: Yes (Congenital Anomaly)
  Sender: FDA-Public Use
  Company Number: GB-B.I. PHARMACEUTICALS,INC./RIDGEFIELD-2014-BI-12843UK

PATIENT
  Sex: Female
  Weight: 3.76 kg

DRUGS (7)
  1. SPIRIVA [Suspect]
     Indication: EXPOSURE DURING PREGNANCY
     Route: 064
  2. ALENDRONIC ACID [Suspect]
     Indication: EXPOSURE DURING PREGNANCY
     Route: 064
  3. FEXOFENADINE [Suspect]
     Indication: EXPOSURE DURING PREGNANCY
     Route: 064
  4. MONTELUKAST SODIUM [Suspect]
     Indication: EXPOSURE DURING PREGNANCY
     Route: 064
  5. SYMBICORT [Suspect]
     Indication: EXPOSURE DURING PREGNANCY
     Route: 064
  6. THEOPHYLLINE [Suspect]
     Indication: EXPOSURE DURING PREGNANCY
     Route: 064
  7. XOLAIR [Suspect]
     Indication: EXPOSURE DURING PREGNANCY
     Route: 064

REACTIONS (2)
  - Foetal exposure during pregnancy [Unknown]
  - Hearing impaired [Unknown]
